FAERS Safety Report 10385894 (Version 1)
Quarter: 2014Q3

REPORT INFORMATION
  Report Type: Spontaneous
  Country: US (occurrence: US)
  Receive Date: 20140814
  Receipt Date: 20140814
  Transmission Date: 20150326
  Serious: No
  Sender: FDA-Public Use
  Company Number: US-GALDERMA-US13002576

PATIENT
  Age: 32 Year
  Sex: Female

DRUGS (4)
  1. DERMALOGICA EXFOLIATING CLOTH [Concomitant]
     Indication: THERAPEUTIC SKIN CARE TOPICAL
     Route: 061
  2. DERMALOGICA MOISTURIZER WITH HYALURONIC ACID [Concomitant]
     Indication: DRY SKIN PROPHYLAXIS
     Route: 061
     Dates: end: 201308
  3. DIFFERIN [Suspect]
     Active Substance: ADAPALENE
     Indication: RASH
     Route: 061
     Dates: start: 201306
  4. NEUTROGENA BODY WASH WITH SALICYLIC ACID AND GRAPEFRUIT [Concomitant]
     Indication: THERAPEUTIC SKIN CARE TOPICAL
     Route: 061

REACTIONS (4)
  - Dry skin [Not Recovered/Not Resolved]
  - Rash [Not Recovered/Not Resolved]
  - Dysaesthesia [Not Recovered/Not Resolved]
  - Skin irritation [Not Recovered/Not Resolved]

NARRATIVE: CASE EVENT DATE: 201308
